FAERS Safety Report 15260910 (Version 16)
Quarter: 2021Q1

REPORT INFORMATION
  Report Type: Spontaneous
  Country: US (occurrence: US)
  Receive Date: 20180809
  Receipt Date: 20210218
  Transmission Date: 20210419
  Serious: Yes (Hospitalization, Disabling, Other)
  Sender: FDA-Public Use
  Company Number: US-BIOMARINAP-US-2018-119386

PATIENT
  Age: 37 Year
  Sex: Female
  Weight: 53 kg

DRUGS (2)
  1. ALDURAZYME [Suspect]
     Active Substance: LARONIDASE
     Indication: MUCOPOLYSACCHARIDOSIS I
     Dosage: UNK
     Route: 042
     Dates: start: 20050420
  2. ALDURAZYME [Suspect]
     Active Substance: LARONIDASE
     Dosage: 26.1 MILLIGRAM, QW
     Route: 042
     Dates: start: 20050623

REACTIONS (29)
  - Contusion [Recovered/Resolved with Sequelae]
  - Gait disturbance [Not Recovered/Not Resolved]
  - Cough [Recovered/Resolved with Sequelae]
  - Depression [Unknown]
  - Chest pain [Unknown]
  - Fatigue [Unknown]
  - Mental disorder [Unknown]
  - Nausea [Unknown]
  - Dizziness [Unknown]
  - Pain in extremity [Unknown]
  - Heart rate increased [Unknown]
  - Neck pain [Recovering/Resolving]
  - Cervical spinal stenosis [Recovering/Resolving]
  - Nasal congestion [Unknown]
  - Psoriasis [Unknown]
  - Blood pressure fluctuation [Unknown]
  - Carpal tunnel decompression [Unknown]
  - Product dose omission issue [Unknown]
  - Post procedural complication [Unknown]
  - Respiratory syncytial virus infection [Recovered/Resolved with Sequelae]
  - Arthralgia [Unknown]
  - Gait disturbance [Recovering/Resolving]
  - Hypoaesthesia [Recovering/Resolving]
  - Fall [Recovered/Resolved with Sequelae]
  - Malaise [Not Recovered/Not Resolved]
  - Emotional distress [Unknown]
  - Headache [Unknown]
  - Muscle swelling [Recovered/Resolved with Sequelae]
  - Hypoaesthesia [Unknown]

NARRATIVE: CASE EVENT DATE: 201807
